FAERS Safety Report 8504314-5 (Version None)
Quarter: 2012Q3

REPORT INFORMATION
  Report Type: 
  Country: None (occurrence: None)
  Receive Date: 20120711
  Receipt Date: 20120709
  Transmission Date: 20120928
  Serious: No
  Sender: FDA-Public Use
  Company Number: US-BAYER-2012-068789

PATIENT
  Sex: Female

DRUGS (1)
  1. CLIMARA [Suspect]
     Dosage: 0.075 MG, UNK
     Dates: start: 20090101

REACTIONS (2)
  - SKIN DISCOLOURATION [None]
  - IRRITABILITY [None]
